FAERS Safety Report 4580162-6 (Version None)
Quarter: 2005Q1

REPORT INFORMATION
  Report Type: 
  Country: None (occurrence: None)
  Receive Date: 20050214
  Receipt Date: 20050202
  Transmission Date: 20050727
  Serious: Yes (Death, Hospitalization)
  Sender: FDA-Public Use
  Company Number: US-JNJFOC-20040604286

PATIENT
  Sex: Female
  Weight: 10.1 kg

DRUGS (4)
  1. TYLENOL (CAPLET) [Suspect]
     Route: 049
  2. TYLENOL (CAPLET) [Suspect]
     Indication: ABDOMINAL PAIN
     Dosage: 500 MG ON 03-JAN-03, 4 DOSES (500 MG PER DOSE) ON 04-JAN-03 AND 2 DOSES ON 05-JAN-2003.
     Route: 049
  3. TYLENOL (CAPLET) [Suspect]
     Indication: RESPIRATORY SYNCYTIAL VIRUS INFECTION
     Route: 049
  4. CEFZIL [Concomitant]

REACTIONS (12)
  - ACCIDENTAL OVERDOSE [None]
  - CARDIO-RESPIRATORY ARREST [None]
  - CYTOMEGALOVIRUS ANTIBODY POSITIVE [None]
  - DRUG TOXICITY [None]
  - ENCEPHALOPATHY [None]
  - HEPATIC FAILURE [None]
  - HEPATIC NECROSIS [None]
  - MULTI-ORGAN FAILURE [None]
  - PRESCRIBED OVERDOSE [None]
  - RESPIRATORY SYNCYTIAL VIRUS INFECTION [None]
  - SEPSIS [None]
  - THROMBOCYTOPENIA [None]
